FAERS Safety Report 18787298 (Version 2)
Quarter: 2021Q1

REPORT INFORMATION
  Report Type: Report from Study
  Country: US (occurrence: US)
  Receive Date: 20210125
  Receipt Date: 20210210
  Transmission Date: 20210419
  Serious: Yes (Hospitalization)
  Sender: FDA-Public Use
  Company Number: NVSC2021US012001

PATIENT
  Sex: Male

DRUGS (1)
  1. TABRECTA [Suspect]
     Active Substance: CAPMATINIB
     Indication: NON-SMALL CELL LUNG CANCER
     Dosage: UNK
     Route: 065

REACTIONS (8)
  - Nausea [Unknown]
  - Blood sodium decreased [Unknown]
  - General physical health deterioration [Unknown]
  - Pruritus [Unknown]
  - Abdominal pain [Unknown]
  - Ill-defined disorder [Unknown]
  - Constipation [Unknown]
  - Peripheral swelling [Unknown]
